FAERS Safety Report 14486000 (Version 1)
Quarter: 2018Q1

REPORT INFORMATION
  Report Type: Spontaneous
  Country: SG (occurrence: SG)
  Receive Date: 20180205
  Receipt Date: 20180205
  Transmission Date: 20180509
  Serious: Yes (Other)
  Sender: FDA-Public Use
  Company Number: SG-BAYER-2018-021790

PATIENT
  Age: 34 Year
  Sex: Female

DRUGS (4)
  1. CLARITYN 10 MG [Suspect]
     Active Substance: LORATADINE
     Dosage: UNK
  2. DEXTROMETHORPHAN [Suspect]
     Active Substance: DEXTROMETHORPHAN
  3. CARBOCISTEINE [Suspect]
     Active Substance: CARBOCYSTEINE
  4. AMOXICILLIN AND CLAVULANATE POTASSIUM [Suspect]
     Active Substance: AMOXICILLIN\CLAVULANATE POTASSIUM

REACTIONS (3)
  - Rash generalised [Unknown]
  - Pyrexia [Unknown]
  - Dyspnoea [Unknown]

NARRATIVE: CASE EVENT DATE: 20150101
